FAERS Safety Report 5134061-1 (Version None)
Quarter: 2006Q4

REPORT INFORMATION
  Report Type: 
  Country: None (occurrence: None)
  Receive Date: 20061019
  Receipt Date: 20061013
  Transmission Date: 20070319
  Serious: Yes (Disabling)
  Sender: FDA-Public Use
  Company Number: 2006S1000206

PATIENT
  Age: 6 Day
  Sex: Male

DRUGS (8)
  1. NITRIC OXIDE [Suspect]
     Indication: LUNG DISORDER
     Dosage: 5 PPM; CONT; INH
     Route: 055
     Dates: start: 20060720, end: 20060720
  2. NITRIC OXIDE [Suspect]
     Indication: PROPHYLAXIS
     Dosage: 5 PPM; CONT; INH
     Route: 055
     Dates: start: 20060720, end: 20060720
  3. INDOMETHACIN [Concomitant]
  4. CAFFEINE (CAFFEINE) [Concomitant]
  5. AMPICILLIN [Concomitant]
  6. AMIKACIN [Concomitant]
  7. DORMICUM /GFR/ (MIDAZOLAM HYDROCHLORIDE) [Concomitant]
  8. INSULIN (INSULIN) [Concomitant]

REACTIONS (7)
  - BRADYPNOEA [None]
  - BRAIN DAMAGE [None]
  - CONVULSION NEONATAL [None]
  - DEVICE FAILURE [None]
  - INTRAVENTRICULAR HAEMORRHAGE NEONATAL [None]
  - NEONATAL DISORDER [None]
  - PORENCEPHALY [None]
